FAERS Safety Report 25532315 (Version 1)
Quarter: 2025Q3

REPORT INFORMATION
  Report Type: Report from Study
  Country: EG (occurrence: EG)
  Receive Date: 20250709
  Receipt Date: 20250709
  Transmission Date: 20251021
  Serious: Yes (Life-Threatening)
  Sender: ROCHE
  Company Number: EG-ROCHE-10000171374

PATIENT
  Age: 31 Year
  Sex: Female
  Weight: 60 kg

DRUGS (1)
  1. OCREVUS [Suspect]
     Active Substance: OCRELIZUMAB
     Indication: Multiple sclerosis
     Route: 042
     Dates: start: 20240521

REACTIONS (17)
  - Pneumonia [Recovered/Resolved]
  - Asthma [Not Recovered/Not Resolved]
  - Leukopenia [Recovering/Resolving]
  - Weight decreased [Not Recovered/Not Resolved]
  - Paraesthesia [Not Recovered/Not Resolved]
  - Hypoaesthesia [Not Recovered/Not Resolved]
  - Vision blurred [Not Recovered/Not Resolved]
  - Intervertebral disc protrusion [Not Recovered/Not Resolved]
  - Multiple sclerosis [Not Recovered/Not Resolved]
  - Dyspnoea [Recovered/Resolved]
  - Cyanosis [Recovered/Resolved]
  - Headache [Recovered/Resolved]
  - Mobility decreased [Recovered/Resolved]
  - Fatigue [Recovered/Resolved]
  - Pain [Recovered/Resolved]
  - Food allergy [Not Recovered/Not Resolved]
  - Hypersensitivity [Recovering/Resolving]

NARRATIVE: CASE EVENT DATE: 20241120
